FAERS Safety Report 24215245 (Version 2)
Quarter: 2024Q3

REPORT INFORMATION
  Report Type: Spontaneous
  Country: US (occurrence: US)
  Receive Date: 20240816
  Receipt Date: 20240816
  Transmission Date: 20241016
  Serious: Yes (Hospitalization)
  Sender: STRIDES
  Company Number: US-STRIDES ARCOLAB LIMITED-2023SP011340

PATIENT
  Age: 12 Year
  Sex: Female

DRUGS (8)
  1. LISINOPRIL [Suspect]
     Active Substance: LISINOPRIL
     Indication: Cardiac failure
     Dosage: UNK
     Route: 065
  2. BORTEZOMIB [Concomitant]
     Active Substance: BORTEZOMIB
     Indication: Acute myeloid leukaemia
     Dosage: UNK
     Route: 065
  3. SORAFENIB [Concomitant]
     Active Substance: SORAFENIB
     Indication: Acute myeloid leukaemia
     Dosage: UNK
     Route: 065
  4. SUNITINIB [Concomitant]
     Active Substance: SUNITINIB
     Indication: Acute myeloid leukaemia
     Dosage: UNK (SALVAGE CHEMOTHERAPY)
     Route: 065
  5. CLOFARABINE [Concomitant]
     Active Substance: CLOFARABINE
     Indication: Acute myeloid leukaemia
     Dosage: UNK (SALVAGE CHEMOTHERAPY)
     Route: 065
  6. TOPOTECAN [Concomitant]
     Active Substance: TOPOTECAN HYDROCHLORIDE
     Indication: Acute myeloid leukaemia
     Dosage: UNK (SALVAGE CHEMOTHERAPY)
     Route: 065
  7. VINORELBINE [Concomitant]
     Active Substance: VINORELBINE TARTRATE
     Indication: Acute myeloid leukaemia
     Dosage: UNK (SALVAGE CHEMOTHERAPY)
     Route: 065
  8. THIOTEPA [Concomitant]
     Active Substance: THIOTEPA
     Indication: Acute myeloid leukaemia
     Dosage: UNK (SALVAGE CHEMOTHERAPY)
     Route: 065

REACTIONS (1)
  - Drug ineffective [Unknown]
